FAERS Safety Report 19762005 (Version 2)
Quarter: 2021Q4

REPORT INFORMATION
  Report Type: Spontaneous
  Country: JP (occurrence: JP)
  Receive Date: 20210830
  Receipt Date: 20211011
  Transmission Date: 20220303
  Serious: Yes (Hospitalization)
  Sender: FDA-Public Use
  Company Number: JP-MH-2021M1055497AA

PATIENT
  Age: 73 Year
  Sex: Male
  Weight: 61.5 kg

DRUGS (10)
  1. CANDESARTAN [Suspect]
     Active Substance: CANDESARTAN
     Indication: Product used for unknown indication
     Dosage: 12 MILLIGRAM, QD
     Route: 048
     Dates: end: 20210517
  2. AMLODIPINE [Suspect]
     Active Substance: AMLODIPINE BESYLATE
     Indication: Product used for unknown indication
     Dosage: 5 MILLIGRAM, QD
     Route: 048
     Dates: end: 20210517
  3. ERBITUX [Suspect]
     Active Substance: CETUXIMAB
     Indication: Colon cancer
     Dosage: 600 MILLIGRAM
     Route: 042
     Dates: start: 20210426, end: 20210516
  4. BINIMETINIB [Suspect]
     Active Substance: BINIMETINIB
     Indication: Colon cancer
     Dosage: 45 MILLIGRAM, BID
     Route: 048
     Dates: start: 20210426, end: 20210516
  5. BINIMETINIB [Suspect]
     Active Substance: BINIMETINIB
     Dosage: 45 MILLIGRAM, BID
     Route: 048
     Dates: start: 20210524
  6. ENCORAFENIB [Suspect]
     Active Substance: ENCORAFENIB
     Indication: Colon cancer
     Dosage: 300 MILLIGRAM, QD
     Route: 048
     Dates: start: 20210426, end: 20210516
  7. ENCORAFENIB [Suspect]
     Active Substance: ENCORAFENIB
     Dosage: 300 MILLIGRAM
     Route: 048
     Dates: start: 20210524
  8. HANGESHASHINTO                     /08016601/ [Concomitant]
     Indication: Prophylaxis
     Dosage: 2.5 GRAM, TID
     Route: 048
     Dates: start: 20210510
  9. EDOXABAN TOSYLATE [Concomitant]
     Active Substance: EDOXABAN TOSYLATE
     Indication: Product used for unknown indication
     Dosage: 30 MILLIGRAM, QD
     Route: 048
     Dates: start: 20210510, end: 20210801
  10. MINOCYCLINE HYDROCHLORIDE [Concomitant]
     Active Substance: MINOCYCLINE HYDROCHLORIDE
     Indication: Prophylaxis
     Dosage: 100 MILLIGRAM, QD
     Route: 048
     Dates: start: 20210426

REACTIONS (2)
  - Loss of consciousness [Recovering/Resolving]
  - Orthostatic hypotension [Recovering/Resolving]

NARRATIVE: CASE EVENT DATE: 20210517
